FAERS Safety Report 15555281 (Version 2)
Quarter: 2021Q2

REPORT INFORMATION
  Report Type: Other
  Country: DE (occurrence: DE)
  Receive Date: 20181026
  Receipt Date: 20210610
  Transmission Date: 20210716
  Serious: Yes (Death, Life-Threatening, Hospitalization, Other)
  Sender: FDA-Public Use
  Company Number: DE-MACLEODS PHARMACEUTICALS US LTD-MAC2018018117

PATIENT

DRUGS (57)
  1. RAMIPRIL TABLET [Suspect]
     Active Substance: RAMIPRIL
     Dosage: 10 MILLIGRAM
     Route: 048
     Dates: start: 20010616, end: 20010714
  2. HALDOL [Suspect]
     Active Substance: HALOPERIDOL
     Indication: RESTLESSNESS
     Dosage: 3 GTT, QD, ORAL DROPS
     Route: 048
     Dates: start: 20010713, end: 20010714
  3. METOCLOPRAMIDE HYDROCHLORIDE. [Suspect]
     Active Substance: METOCLOPRAMIDE HYDROCHLORIDE
     Indication: NAUSEA
     Dosage: 7 MILLIGRAM
     Route: 048
     Dates: start: 20010704, end: 20010712
  4. MOLSIDOMINE [Suspect]
     Active Substance: MOLSIDOMINE
     Dosage: 8 MILLIGRAM  QD
     Route: 048
     Dates: start: 20010703, end: 20010714
  5. PANTOZOL [Suspect]
     Active Substance: PANTOPRAZOLE SODIUM
     Dosage: 80 MILLIGRAM, QD
     Route: 048
  6. SORTIS [Suspect]
     Active Substance: ATORVASTATIN
     Indication: HYPERLIPIDAEMIA
     Dosage: 20 MILLIGRAM, QD
     Route: 048
     Dates: start: 20010616, end: 20010703
  7. BROMAZEPAM [Concomitant]
     Active Substance: BROMAZEPAM
     Indication: RESTLESSNESS
     Dosage: 2 MILLIGRAM
     Route: 048
     Dates: start: 20010713, end: 20010714
  8. GLIMEPIRIDE. [Concomitant]
     Active Substance: GLIMEPIRIDE
     Indication: DIABETES MELLITUS
     Dosage: 3 MILLIGRAM, QD
     Route: 048
     Dates: start: 20010616, end: 20010703
  9. METFORMIN HYDROCHLORIDE. [Suspect]
     Active Substance: METFORMIN HYDROCHLORIDE
     Indication: DIABETES MELLITUS
     Dosage: 250 MILLIGRAM, QD
     Route: 048
     Dates: start: 20010616, end: 20010714
  10. PANTOPRAZOLE [Suspect]
     Active Substance: PANTOPRAZOLE
     Indication: PROPHYLAXIS
     Dosage: 80 MILLIGRAM, QD
     Route: 048
     Dates: end: 20010714
  11. RAMIPRIL TABLET [Suspect]
     Active Substance: RAMIPRIL
     Dosage: 5 MILLIGRAM, QD
     Route: 048
     Dates: start: 20010616, end: 20010714
  12. AMPHOTERICIN B, TETRACYCLINE [Suspect]
     Active Substance: AMPHOTERICIN B\TETRACYCLINE
     Indication: ANTIFUNGAL PROPHYLAXIS
     Dosage: 200 MILLIGRAM, QD
     Route: 048
     Dates: start: 20010703, end: 20010714
  13. DIAZEPAM. [Suspect]
     Active Substance: DIAZEPAM
     Indication: RESTLESSNESS
     Dosage: 5 MILLIGRAM
     Route: 048
     Dates: start: 20010616, end: 20010703
  14. MOLSIDOMINE [Suspect]
     Active Substance: MOLSIDOMINE
     Indication: CORONARY ARTERY DISEASE
     Dosage: 8 MILLIGRAM  QD, DOSE REDUCED FROM 16 TO 8 MG DAILY
     Route: 048
     Dates: start: 20010703, end: 20010714
  15. CONCOR [Suspect]
     Active Substance: BISOPROLOL FUMARATE
     Indication: CORONARY ARTERY DISEASE
     Dosage: 8 MG, FOR 29 DAYS
     Route: 048
     Dates: start: 20010616, end: 20010714
  16. BROMAZEPAM [Concomitant]
     Active Substance: BROMAZEPAM
     Dosage: 1.5 MILLIGRAM, BID
     Route: 048
     Dates: start: 20010713, end: 20010714
  17. INSULIN GLARGINE [Concomitant]
     Active Substance: INSULIN GLARGINE
     Indication: DIABETES MELLITUS
     Dosage: 16 INTERNATIONAL UNIT
     Route: 058
     Dates: start: 20010629
  18. IRENAT [Suspect]
     Active Substance: SODIUM PERCHLORATE
     Indication: HYPERTHYROIDISM
     Dosage: 688 MILLIGRAM, ORAL DROP, 688 MG, (TOTAL DAILY DOSE RANGED FROM 1376.8 MG TO 2065.2 MG)
     Route: 048
     Dates: start: 20010618, end: 20010714
  19. PERENTEROL [Suspect]
     Active Substance: SACCHAROMYCES CEREVISIAE
     Indication: DIARRHOEA
     Dosage: 300 MILLIGRAM, (100 MG TO 300MG)
     Route: 048
     Dates: start: 20010711, end: 20010714
  20. NORVASC [Suspect]
     Active Substance: AMLODIPINE BESYLATE
     Indication: CORONARY ARTERY DISEASE
     Dosage: 5 MILLIGRAM, QD
     Route: 048
     Dates: start: 20010703, end: 20010714
  21. ROCEPHIN [Suspect]
     Active Substance: CEFTRIAXONE SODIUM
     Indication: PYREXIA
     Dosage: 2 GRAM, QD, 1 G BID(CUMULATIVE DOSE 10 G)
     Route: 042
     Dates: start: 20010629, end: 20010703
  22. LANTUS [Suspect]
     Active Substance: INSULIN GLARGINE
     Indication: DIABETES MELLITUS
     Dosage: 16 INTERNATIONAL UNIT, QD
     Route: 058
     Dates: start: 20010616, end: 20010629
  23. FRAGMIN [Suspect]
     Active Substance: DALTEPARIN SODIUM
     Indication: THROMBOSIS PROPHYLAXIS
     Dosage: 2500 INTERNATIONAL UNIT, QD
     Route: 058
     Dates: start: 20010703, end: 20010714
  24. AMPHOTERICIN B. [Suspect]
     Active Substance: AMPHOTERICIN B
     Indication: ANTIFUNGAL PROPHYLAXIS
     Dosage: 200 MILLIGRAM, QD, DOSE FORM STATED AS PIPETTES
     Route: 048
     Dates: start: 20010703, end: 20010714
  25. BISOPROLOL FUMARATE. [Concomitant]
     Active Substance: BISOPROLOL FUMARATE
     Indication: CORONARY ARTERY DISEASE
     Dosage: 5 MILLIGRAM, QD
     Route: 048
     Dates: end: 20010714
  26. POTASSIUM [Concomitant]
     Active Substance: POTASSIUM
     Indication: ELECTROLYTE IMBALANCE
     Dosage: 1500 MILLIGRAM
     Route: 048
     Dates: start: 20010703, end: 20010714
  27. CARBIMAZOLE [Suspect]
     Active Substance: CARBIMAZOLE
     Indication: HYPERTHYROIDISM
     Dosage: 30 MILLIGRAM, QD, DOSE RANGED FROM 20?30 MG DAILY
     Route: 048
     Dates: start: 20010621, end: 20010714
  28. PREDNISOLONE. [Suspect]
     Active Substance: PREDNISOLONE
     Indication: DYSPNOEA
     Dosage: 50 MILLIGRAM, QD, PREDNISOLONE SODIUM SUCCINATE
     Route: 042
     Dates: start: 20010703, end: 20010703
  29. HALDOL [Suspect]
     Active Substance: HALOPERIDOL
     Dosage: UNK, TABLET
     Route: 048
     Dates: start: 20010713, end: 20010714
  30. RAMIPRIL TABLET [Suspect]
     Active Substance: RAMIPRIL
     Indication: CORONARY ARTERY DISEASE
     Dosage: 5 MILLIGRAM, EVERY 29 DAY
     Route: 048
     Dates: start: 20010616, end: 20010714
  31. AMARYL [Suspect]
     Active Substance: GLIMEPIRIDE
     Indication: DIABETES MELLITUS
     Dosage: 3 MILLIGRAM, EVERY 18 DAYS
     Route: 048
     Dates: start: 20010616, end: 20010703
  32. CAPTOPRIL. [Suspect]
     Active Substance: CAPTOPRIL
     Indication: CORONARY ARTERY DISEASE
     Dosage: 1 DOSAGE FORM, QD, DAEVERY 29 DAYS, 1MOL/ML
     Route: 048
     Dates: start: 20010616, end: 20010714
  33. LASIX [Suspect]
     Active Substance: FUROSEMIDE
     Indication: HYPERTENSION
     Dosage: 120 MILLIGRAM, QD DOSE RANGED FROM 80 MG?120 MG DAILY
     Route: 042
     Dates: start: 20010703, end: 20010714
  34. PANTOZOL [Suspect]
     Active Substance: PANTOPRAZOLE SODIUM
     Indication: PROPHYLAXIS
     Dosage: 40 MILLIGRAM, QD, DOSE DECREASED FROM 80 TO 40 MG DAILY
     Route: 048
     Dates: start: 20010616, end: 20010714
  35. TRANXENE [Suspect]
     Active Substance: CLORAZEPATE DIPOTASSIUM
     Indication: RESTLESSNESS
     Dosage: UNK
     Route: 048
     Dates: start: 20010710
  36. FRAGMIN [Suspect]
     Active Substance: DALTEPARIN SODIUM
     Dosage: UNK, TABLET
     Route: 048
     Dates: start: 20010703, end: 20010714
  37. SODIUM PERCHLORATE [Concomitant]
     Active Substance: SODIUM PERCHLORATE
     Indication: PRODUCT USED FOR UNKNOWN INDICATION
     Dosage: 60 GTT, QD
     Route: 048
     Dates: start: 20010618, end: 20010714
  38. ASPIRIN 100 MG TABLETS [Suspect]
     Active Substance: ASPIRIN
     Indication: CORONARY ARTERY DISEASE
     Dosage: 100 MILLIGRAM, QD
     Route: 048
     Dates: start: 20010616, end: 20010714
  39. DIPOTASSIUM CLORAZEPATE [Suspect]
     Active Substance: CLORAZEPATE DIPOTASSIUM
     Dosage: 10 MILLIGRAM, QD
     Route: 048
     Dates: start: 20010710, end: 20010714
  40. POTASSIUM [Concomitant]
     Active Substance: POTASSIUM
     Dosage: UNK, DOSE STATED AS 2. NO UNITS PROVIDED
     Route: 048
     Dates: start: 20010703, end: 20010714
  41. PANTOPRAZOLE [Suspect]
     Active Substance: PANTOPRAZOLE
     Dosage: 80 MILLIGRAM, QD
     Route: 048
     Dates: start: 20010616
  42. CIPROFLOXACIN TABLETS [Suspect]
     Active Substance: CIPROFLOXACIN
     Dosage: 250 MILLIGRAM, BID
     Route: 048
     Dates: start: 20010710, end: 20010711
  43. PARACETAMOL 500MG TABLET [Suspect]
     Active Substance: ACETAMINOPHEN
     Indication: PAIN
     Dosage: 500 MILLIGRAM, QD
     Route: 048
     Dates: start: 20010711, end: 20010711
  44. DECORTIN [Suspect]
     Active Substance: PREDNISONE
     Indication: DYSPNOEA
     Dosage: 50 MILLIGRAM, QD
     Route: 042
     Dates: start: 20010703, end: 20010703
  45. DECORTIN [Suspect]
     Active Substance: PREDNISONE
     Indication: RESTLESSNESS
  46. DIGOXIN. [Suspect]
     Active Substance: DIGOXIN
     Indication: CORONARY ARTERY DISEASE
     Dosage: 4 MILLIGRAM, QD
     Route: 048
     Dates: start: 20010703, end: 20010714
  47. DIGOXIN. [Suspect]
     Active Substance: DIGOXIN
     Dosage: 0.2 MILLIGRAM, QD
     Route: 048
     Dates: start: 20010703, end: 20010714
  48. ZAROXOLYN [Suspect]
     Active Substance: METOLAZONE
     Indication: HYPERTENSION
     Dosage: 2 MILLIGRAM
     Route: 048
     Dates: start: 20010712, end: 20010713
  49. FUROSEMIDE. [Suspect]
     Active Substance: FUROSEMIDE
     Indication: HYPERTENSION
     Dosage: 80 MILLIGRAM, QD
     Route: 042
     Dates: start: 20010703, end: 20010714
  50. HALOPERIDOL. [Concomitant]
     Active Substance: HALOPERIDOL
     Indication: RESTLESSNESS
     Dosage: UNK
     Route: 048
     Dates: start: 20010713, end: 20010714
  51. CIPROFLOXACIN TABLETS [Suspect]
     Active Substance: CIPROFLOXACIN
     Indication: CHOLECYSTITIS
     Dosage: 500 MILLIGRAM, BID, CIPROFOLXACIN HYDROCHLORIDE
     Route: 048
     Dates: start: 20010620, end: 20010628
  52. NOVODIGAL (.BETA.?ACETYLDIGOXIN) [Suspect]
     Active Substance: .BETA.-ACETYLDIGOXIN
     Indication: CORONARY ARTERY DISEASE
     Dosage: 1 DOSAGE FORM, QD
     Route: 048
     Dates: start: 20010703
  53. DIPOTASSIUM CLORAZEPATE [Suspect]
     Active Substance: CLORAZEPATE DIPOTASSIUM
     Indication: RESTLESSNESS
     Dosage: UNK
     Route: 048
  54. EUNERPAN [Suspect]
     Active Substance: MELPERONE HYDROCHLORIDE
     Indication: RESTLESSNESS
     Dosage: 105 MILLIGRAM, QD DOSE RANGED FROM 80?105 MG DAILY
     Route: 048
     Dates: start: 20010706, end: 20010712
  55. ISOSORBIDE MONONITRATE. [Suspect]
     Active Substance: ISOSORBIDE MONONITRATE
     Indication: CORONARY ARTERY DISEASE
     Dosage: 1 DOSAGE FORM, QD
     Route: 048
     Dates: start: 20010703, end: 20010714
  56. PLAVIX [Suspect]
     Active Substance: CLOPIDOGREL BISULFATE
     Indication: CORONARY ARTERY DISEASE
     Dosage: 75 MILLIGRAM
     Route: 048
     Dates: start: 20010704, end: 20010714
  57. ATORVASTATIN [Concomitant]
     Active Substance: ATORVASTATIN
     Indication: HYPERLIPIDAEMIA
     Dosage: 20 MILLIGRAM, QD
     Route: 065
     Dates: start: 20010616, end: 20010703

REACTIONS (18)
  - Cholecystitis [Fatal]
  - Dermatitis exfoliative [Fatal]
  - Restlessness [Fatal]
  - Hyperthyroidism [Fatal]
  - Electrolyte imbalance [Fatal]
  - Restlessness [Fatal]
  - Respiratory disorder [Fatal]
  - Cholelithiasis [Fatal]
  - Diarrhoea [Fatal]
  - Toxic epidermal necrolysis [Fatal]
  - Blister [Fatal]
  - Diarrhoea [Fatal]
  - Erythema [Fatal]
  - Hyperthyroidism [Fatal]
  - Nausea [Fatal]
  - Condition aggravated [Fatal]
  - Multiple organ dysfunction syndrome [Fatal]
  - Nausea [Fatal]

NARRATIVE: CASE EVENT DATE: 20010703
